FAERS Safety Report 6479966-4 (Version None)
Quarter: 2009Q4

REPORT INFORMATION
  Report Type: 
  Country: None (occurrence: None)
  Receive Date: 20091208
  Receipt Date: 20091123
  Transmission Date: 20100525
  Serious: Yes (Other)
  Sender: FDA-Public Use
  Company Number: US-SANOFI-AVENTIS-2009SA004486

PATIENT
  Age: 59 Year
  Sex: Female

DRUGS (2)
  1. MULTAQ [Suspect]
     Indication: VENTRICULAR TACHYCARDIA
     Route: 048
     Dates: start: 20091118, end: 20091120
  2. CORGARD [Concomitant]
     Dates: end: 20091101

REACTIONS (10)
  - ARRHYTHMIA [None]
  - BRADYCARDIA [None]
  - CONDITION AGGRAVATED [None]
  - DIZZINESS [None]
  - DYSPNOEA [None]
  - FEELING COLD [None]
  - HYPOTENSION [None]
  - OFF LABEL USE [None]
  - PRESYNCOPE [None]
  - TREMOR [None]
